FAERS Safety Report 12200621 (Version 2)
Quarter: 2017Q1

REPORT INFORMATION
  Report Type: Spontaneous
  Country: US (occurrence: US)
  Receive Date: 20160322
  Receipt Date: 20170331
  Transmission Date: 20170428
  Serious: No
  Sender: FDA-Public Use
  Company Number: US-SEPTODONT-201603159

PATIENT
  Sex: Female

DRUGS (1)
  1. LIDOCAINE HYDROCHLORIDE 2% WITH EPINEPHRINE 1:100,000 INJECTION [Suspect]
     Active Substance: EPINEPHRINE\LIDOCAINE HYDROCHLORIDE
     Indication: LOCAL ANAESTHESIA
     Dosage: THE EXACT NUMBER OF CARTRIDGES ADMINISTERED WAS APPROXIMATELY 1-3 CARTRIDGES.
     Route: 004

REACTIONS (4)
  - Blood pressure decreased [Recovered/Resolved]
  - Paraesthesia oral [Recovered/Resolved]
  - Paraesthesia [Recovered/Resolved]
  - Presyncope [Recovered/Resolved]
